FAERS Safety Report 19370942 (Version 1)
Quarter: 2021Q2

REPORT INFORMATION
  Report Type: Report from Study
  Country: CA (occurrence: CA)
  Receive Date: 20210604
  Receipt Date: 20210604
  Transmission Date: 20210717
  Serious: Yes (Other)
  Sender: FDA-Public Use
  Company Number: CA-JNJFOC-20210350437

PATIENT
  Age: 29 Year
  Sex: Female

DRUGS (1)
  1. REMICADE [Suspect]
     Active Substance: INFLIXIMAB
     Indication: CROHN^S DISEASE
     Route: 042
     Dates: start: 20170919

REACTIONS (5)
  - Pain [Unknown]
  - Fungal infection [Unknown]
  - Discomfort [Unknown]
  - Crohn^s disease [Not Recovered/Not Resolved]
  - Female reproductive tract disorder [Unknown]

NARRATIVE: CASE EVENT DATE: 2021
